FAERS Safety Report 18484982 (Version 4)
Quarter: 2020Q4

REPORT INFORMATION
  Report Type: Report from Study
  Country: BR (occurrence: BR)
  Receive Date: 20201110
  Receipt Date: 20201218
  Transmission Date: 20210114
  Serious: Yes (Disabling)
  Sender: FDA-Public Use
  Company Number: NVSC2020BR298115

PATIENT
  Sex: Male

DRUGS (2)
  1. MINILAX [Concomitant]
     Indication: PRODUCT USED FOR UNKNOWN INDICATION
     Dosage: UNK
     Route: 065
  2. MAXIDEX [Suspect]
     Active Substance: DEXAMETHASONE
     Indication: PROPHYLAXIS
     Dosage: 5 MG (1.0 MG, MORE THAN 3 YEARS AGO)
     Route: 047
     Dates: start: 2017

REACTIONS (4)
  - Blindness [Unknown]
  - Counterfeit product administered [Unknown]
  - Visual impairment [Unknown]
  - Product use in unapproved indication [Unknown]
